FAERS Safety Report 9426514 (Version 1)
Quarter: 2013Q3

REPORT INFORMATION
  Report Type: Spontaneous
  Country: US (occurrence: None)
  Receive Date: 20130729
  Receipt Date: 20130729
  Transmission Date: 20140515
  Serious: No
  Sender: FDA-Public Use
  Company Number: None

PATIENT
  Age: 47 Year
  Sex: Female

DRUGS (1)
  1. METHYLPHENIDATE [Suspect]
     Indication: ATTENTION DEFICIT/HYPERACTIVITY DISORDER
     Dosage: 1
     Dates: start: 20130401, end: 20130727

REACTIONS (7)
  - Fatigue [None]
  - Product quality issue [None]
  - Anxiety [None]
  - No therapeutic response [None]
  - Impaired driving ability [None]
  - Product substitution issue [None]
  - Therapeutic response unexpected with drug substitution [None]
